FAERS Safety Report 9692553 (Version 1)
Quarter: 2013Q4

REPORT INFORMATION
  Report Type: Spontaneous
  Country: US (occurrence: US)
  Receive Date: 20131118
  Receipt Date: 20131118
  Transmission Date: 20140711
  Serious: Yes (Hospitalization)
  Sender: FDA-Public Use
  Company Number: US-BAYER-2013-139889

PATIENT
  Age: 40 Year
  Sex: Female

DRUGS (5)
  1. YASMIN [Suspect]
  2. ARMOUR THYROID [Concomitant]
     Indication: HYPOTHYROIDISM
  3. FLONASE [Concomitant]
     Indication: RHINITIS ALLERGIC
  4. SARAFEM [Concomitant]
     Indication: PREMENSTRUAL DYSPHORIC DISORDER
  5. ALLEGRA [Concomitant]

REACTIONS (1)
  - Pulmonary embolism [None]
